FAERS Safety Report 9481687 (Version 1)
Quarter: 2013Q3

REPORT INFORMATION
  Report Type: Spontaneous
  Country: US (occurrence: US)
  Receive Date: 20130828
  Receipt Date: 20130828
  Transmission Date: 20140515
  Serious: Yes (Hospitalization)
  Sender: FDA-Public Use
  Company Number: US-AMGEN-KDL209762

PATIENT
  Age: 70 Year
  Sex: Female

DRUGS (2)
  1. ENBREL [Suspect]
     Indication: RHEUMATOID ARTHRITIS
     Dosage: 50 MG, QWK
     Route: 058
     Dates: start: 20061205
  2. HYDROXYCHLOROQUINE SULFATE [Concomitant]
     Dosage: 400 MG, QD
     Route: 048
     Dates: start: 2002

REACTIONS (5)
  - Viral infection [Unknown]
  - Gastrointestinal infection [Unknown]
  - Dehydration [Unknown]
  - Rheumatoid arthritis [Unknown]
  - Injection site bruising [Recovered/Resolved]
